FAERS Safety Report 10170414 (Version 2)
Quarter: 2014Q2

REPORT INFORMATION
  Report Type: Spontaneous
  Country: FR (occurrence: FR)
  Receive Date: 20140513
  Receipt Date: 20140523
  Transmission Date: 20141212
  Serious: Yes (Hospitalization)
  Sender: FDA-Public Use
  Company Number: FR-ROCHE-1397350

PATIENT
  Age: 60 Year
  Sex: Male

DRUGS (23)
  1. CELLCEPT [Suspect]
     Indication: PRODUCT USED FOR UNKNOWN INDICATION
     Route: 065
     Dates: end: 201402
  2. CARBOPLATIN [Suspect]
     Indication: PRODUCT USED FOR UNKNOWN INDICATION
     Route: 042
     Dates: start: 201402
  3. FLUOROURACILE [Suspect]
     Indication: PRODUCT USED FOR UNKNOWN INDICATION
     Route: 042
     Dates: start: 201402
  4. TAXOTERE [Suspect]
     Indication: PRODUCT USED FOR UNKNOWN INDICATION
     Route: 042
     Dates: start: 201402
  5. EMEND [Suspect]
     Indication: PRODUCT USED FOR UNKNOWN INDICATION
     Route: 065
     Dates: start: 201402
  6. ZOPHREN [Suspect]
     Indication: PRODUCT USED FOR UNKNOWN INDICATION
     Route: 065
     Dates: start: 201402
  7. METHYLPREDNISOLONE [Suspect]
     Indication: PRODUCT USED FOR UNKNOWN INDICATION
     Route: 065
     Dates: start: 201402
  8. SOLUPRED (FRANCE) [Suspect]
     Indication: PRODUCT USED FOR UNKNOWN INDICATION
     Route: 065
  9. ZARZIO [Concomitant]
     Route: 065
     Dates: start: 20140227, end: 20140303
  10. MOPRAL [Concomitant]
     Route: 065
  11. ATENOLOL [Concomitant]
     Route: 065
  12. AMLODIPINE [Concomitant]
     Route: 065
  13. COMBIGAN [Concomitant]
     Route: 065
  14. TRIATEC (FRANCE) [Concomitant]
     Route: 065
  15. IMOVANE [Concomitant]
     Route: 065
  16. TRUSOPT [Concomitant]
     Route: 065
  17. VITAMIN C [Concomitant]
     Route: 065
  18. SPECIAFOLDINE [Concomitant]
     Route: 065
  19. ALDACTONE (FRANCE) [Concomitant]
     Route: 065
  20. DOLIPRANE [Concomitant]
  21. LYRICA [Concomitant]
     Route: 065
  22. ALPRAZOLAM [Concomitant]
  23. HYPERIUM [Concomitant]
     Route: 065

REACTIONS (6)
  - Febrile neutropenia [Recovered/Resolved]
  - Diarrhoea [Recovered/Resolved]
  - Hypokalaemia [Recovered/Resolved]
  - Atrial fibrillation [Recovered/Resolved with Sequelae]
  - Thrombocytopenia [Recovered/Resolved]
  - Lymphopenia [Unknown]
